FAERS Safety Report 8060121-1 (Version None)
Quarter: 2012Q1

REPORT INFORMATION
  Report Type: 
  Country: None (occurrence: None)
  Receive Date: 20120120
  Receipt Date: 20120113
  Transmission Date: 20120608
  Serious: Yes (Other)
  Sender: FDA-Public Use
  Company Number: GR-PFIZER INC-2012000232

PATIENT
  Age: 53 Year
  Sex: Female

DRUGS (2)
  1. EVISTA [Suspect]
     Dosage: UNK
     Dates: start: 20120111
  2. AROMASIN [Suspect]
     Indication: BREAST CANCER
     Dosage: 25 MG, 1X/DAY
     Route: 048
     Dates: start: 20111201, end: 20120101

REACTIONS (10)
  - ARTHRALGIA [None]
  - ABDOMINAL DISCOMFORT [None]
  - PRURITUS [None]
  - MUSCULOSKELETAL PAIN [None]
  - PARAESTHESIA [None]
  - BLOOD ALKALINE PHOSPHATASE INCREASED [None]
  - LIPOPROTEIN (A) INCREASED [None]
  - BACK PAIN [None]
  - ARTHRITIS [None]
  - FACE OEDEMA [None]
